FAERS Safety Report 14664520 (Version 1)
Quarter: 2018Q1

REPORT INFORMATION
  Report Type: Spontaneous
  Country: JP (occurrence: JP)
  Receive Date: 20180321
  Receipt Date: 20180321
  Transmission Date: 20180509
  Serious: Yes (Hospitalization)
  Sender: FDA-Public Use
  Company Number: JP-PFIZER INC-2018112832

PATIENT
  Sex: Male

DRUGS (2)
  1. WYPAX [Suspect]
     Active Substance: LORAZEPAM
     Indication: ANXIETY DISORDER
     Dosage: UNK (AT BED)
  2. WYPAX [Suspect]
     Active Substance: LORAZEPAM
     Indication: SLEEP DISORDER

REACTIONS (1)
  - Cerebrovascular accident [Unknown]
